FAERS Safety Report 14547477 (Version 2)
Quarter: 2018Q1

REPORT INFORMATION
  Report Type: Spontaneous
  Country: LB (occurrence: LB)
  Receive Date: 20180219
  Receipt Date: 20180226
  Transmission Date: 20180509
  Serious: Yes (Other)
  Sender: FDA-Public Use
  Company Number: LB-MYLANLABS-2018M1011283

PATIENT
  Age: 49 Year
  Sex: Female

DRUGS (16)
  1. FLUDARABINE [Suspect]
     Active Substance: FLUDARABINE PHOSPHATE
     Indication: BONE MARROW CONDITIONING REGIMEN
     Dosage: 30 MG/M2/DAY FOR 5 DAYS STARTING 6 DAYS BEFORE TRANSPLANT
     Route: 065
  2. SORAFENIB [Suspect]
     Active Substance: SORAFENIB
     Indication: ACUTE MYELOID LEUKAEMIA
     Dosage: 400 MG, UNK
     Route: 048
  3. IDARUBICIN [Suspect]
     Active Substance: IDARUBICIN
     Indication: ACUTE MYELOID LEUKAEMIA
     Dosage: 12MG/M2/DAY FOR 3 DAYS
     Route: 065
  4. SORAFENIB [Suspect]
     Active Substance: SORAFENIB
     Dosage: 400MG TWICE DAILY STARTED ON DAY 48 OF TRANSPLANT AND WITHDRAWN ON DAY 76. LATER RESUMED ON DAY 167
     Route: 065
  5. THYMOGLOBULIN [Suspect]
     Active Substance: LAPINE T-LYMPHOCYTE IMMUNE GLOBULIN
     Indication: BONE MARROW CONDITIONING REGIMEN
     Dosage: 2.5 MG/KG FOR 2 DAYS STARTING 2 DAYS BEFORE TRANSPLANT
     Route: 065
  6. CYTARABINE. [Suspect]
     Active Substance: CYTARABINE
     Indication: ACUTE MYELOID LEUKAEMIA
     Dosage: CONTINUOUS INFUSION OF 1.5G/M2/DAY FOR 4 DAYS
     Route: 050
  7. MYCOPHENOLATE MOFETIL. [Suspect]
     Active Substance: MYCOPHENOLATE MOFETIL
     Indication: PROPHYLAXIS AGAINST GRAFT VERSUS HOST DISEASE
     Dosage: STARTED FROM DAY 5 OF TRANSPLANT
     Route: 065
  8. UROMITEXAN [Concomitant]
     Active Substance: MESNA
     Indication: CYTOMEGALOVIRUS INFECTION
     Dosage: UNK
     Route: 065
  9. RISPERIDONE. [Suspect]
     Active Substance: RISPERIDONE
     Indication: JC VIRUS INFECTION
     Dosage: PLANNED TO GIVE 8MG DAILY AS PER DOSE ESCALATION HOWEVER RECEIVED ONLY 4MG DAILY
     Route: 065
     Dates: start: 201612
  10. CYCLOSPORINE. [Suspect]
     Active Substance: CYCLOSPORINE
     Indication: PROPHYLAXIS AGAINST GRAFT VERSUS HOST DISEASE
     Dosage: STARTED FROM DAY 5 OF TRANSPLANT
     Route: 065
  11. VALGANCICLOVIR. [Concomitant]
     Active Substance: VALGANCICLOVIR
     Indication: CYTOMEGALOVIRUS INFECTION
     Dosage: UNK
     Route: 065
  12. THIOTEPA. [Suspect]
     Active Substance: THIOTEPA
     Indication: BONE MARROW CONDITIONING REGIMEN
     Dosage: 5MG/KG STARTED 7 DAYS BEFORE TRANSPLANT
     Route: 065
  13. BUSULFAN. [Suspect]
     Active Substance: BUSULFAN
     Indication: BONE MARROW CONDITIONING REGIMEN
     Dosage: 130 MG/M2/DAY FOR 2 DAYS STARTING 3 DAYS BEFORE TRANSPLANT
     Route: 042
  14. CYCLOPHOSPHAMIDE. [Suspect]
     Active Substance: CYCLOPHOSPHAMIDE
     Indication: ACUTE MYELOID LEUKAEMIA
     Dosage: 50MG/KG/DAY ON DAYS 3 AND 4
     Route: 065
  15. AZACITIDINE. [Suspect]
     Active Substance: AZACITIDINE
     Indication: ACUTE MYELOID LEUKAEMIA
     Dosage: 32 MG/M2/DAY FOR 5 DAYS MONTHLY AND WAS DISCONTINUED AFTER TWO CYCLES
     Route: 065
  16. RITUXIMAB. [Suspect]
     Active Substance: RITUXIMAB
     Indication: ABO INCOMPATIBILITY
     Dosage: WEEKLY RITUXIMAB FOR 4 DOSES STARTED ON DAY 70 OF TRANSPLANT
     Route: 065

REACTIONS (4)
  - Progressive multifocal leukoencephalopathy [Recovered/Resolved]
  - Dysarthria [Unknown]
  - Haematotoxicity [Unknown]
  - JC virus infection [Recovered/Resolved]
